FAERS Safety Report 24833273 (Version 2)
Quarter: 2025Q1

REPORT INFORMATION
  Report Type: Spontaneous
  Country: US (occurrence: US)
  Receive Date: 20250111
  Receipt Date: 20250127
  Transmission Date: 20250408
  Serious: Yes (Other)
  Sender: ABBVIE
  Company Number: US-ABBVIE-6079627

PATIENT
  Age: 63 Year
  Sex: Female

DRUGS (2)
  1. HUMIRA [Suspect]
     Active Substance: ADALIMUMAB
     Indication: Rheumatoid arthritis
     Route: 058
     Dates: start: 2019
  2. XELJANZ [Concomitant]
     Active Substance: TOFACITINIB CITRATE
     Indication: Product used for unknown indication

REACTIONS (6)
  - Basal cell carcinoma [Recovered/Resolved]
  - Gait inability [Unknown]
  - Mobility decreased [Unknown]
  - Drug ineffective [Unknown]
  - Epistaxis [Unknown]
  - Scab [Unknown]

NARRATIVE: CASE EVENT DATE: 20240701
